FAERS Safety Report 9332822 (Version 1)
Quarter: 2013Q2

REPORT INFORMATION
  Report Type: Spontaneous
  Country: US (occurrence: US)
  Receive Date: 20130606
  Receipt Date: 20130606
  Transmission Date: 20140414
  Serious: Yes (Hospitalization)
  Sender: FDA-Public Use
  Company Number: US-PFIZER INC-2013169480

PATIENT
  Age: 79 Year
  Sex: Male
  Weight: 83.9 kg

DRUGS (3)
  1. TOVIAZ [Suspect]
     Indication: URINARY INCONTINENCE
     Dosage: 8 MG, 1X/DAY
     Dates: start: 201207, end: 20130503
  2. TOVIAZ [Suspect]
     Dosage: 8 MG, 1X/DAY
     Dates: start: 20130515
  3. DIOVAN (VALSARTAN) [Concomitant]
     Indication: PROPHYLAXIS
     Dosage: 40 MG, 1X/DAY

REACTIONS (4)
  - Thrombosis [Unknown]
  - Cystitis radiation [Unknown]
  - Urinary retention [Unknown]
  - Drug ineffective [Unknown]
